FAERS Safety Report 5619104-0 (Version None)
Quarter: 2008Q1

REPORT INFORMATION
  Report Type: 
  Country: None (occurrence: None)
  Receive Date: 20080207
  Receipt Date: 20080131
  Transmission Date: 20080703
  Serious: Yes (Other)
  Sender: FDA-Public Use
  Company Number: US-PFIZER INC-2008010452

PATIENT
  Sex: Female
  Weight: 61.2 kg

DRUGS (3)
  1. LYRICA [Suspect]
     Indication: PAIN IN EXTREMITY
     Dates: start: 20080125, end: 20080126
  2. LYRICA [Suspect]
     Indication: NECK PAIN
  3. ALEVE [Concomitant]

REACTIONS (5)
  - DIZZINESS [None]
  - FALL [None]
  - PAIN [None]
  - SOMNOLENCE [None]
  - TREATMENT NONCOMPLIANCE [None]
